FAERS Safety Report 5812649-X (Version None)
Quarter: 2008Q3

REPORT INFORMATION
  Report Type: 
  Country: None (occurrence: None)
  Receive Date: 20080711
  Receipt Date: 20080702
  Transmission Date: 20090109
  Serious: Yes (Other)
  Sender: FDA-Public Use
  Company Number: 2008SP008717

PATIENT
  Age: 65 Year
  Sex: Female
  Weight: 72.5755 kg

DRUGS (13)
  1. MIRALAX [Suspect]
     Indication: GASTROINTESTINAL MOTILITY DISORDER
     Dosage: 17 GM;ONCE;PO
     Route: 048
  2. PLAVIX (CON.) [Concomitant]
  3. DARVOCET (CON.) [Concomitant]
  4. TRANXENE (CON.) [Concomitant]
  5. PRILOSEC (CON.) [Concomitant]
  6. BLOOD PRESSURE (CON.) [Concomitant]
  7. LISINOPRIL (CON.) [Concomitant]
  8. PROPOXY (CON.) [Concomitant]
  9. ADVAIR (CON.) [Concomitant]
  10. COMBIVENT (CON.) [Concomitant]
  11. ALBUTEROL (CON.) [Concomitant]
  12. ZOCOR (CON.) [Concomitant]
  13. ASPIRIN (CON.) [Concomitant]

REACTIONS (7)
  - GLOSSODYNIA [None]
  - NONSPECIFIC REACTION [None]
  - PAIN IN EXTREMITY [None]
  - PAIN IN JAW [None]
  - PRURITUS [None]
  - SKIN DISCOLOURATION [None]
  - URTICARIA [None]
